FAERS Safety Report 9506045 (Version 5)
Quarter: 2014Q1

REPORT INFORMATION
  Report Type: Spontaneous
  Country: US (occurrence: None)
  Receive Date: 20130206
  Receipt Date: 20130206
  Transmission Date: 20141002
  Serious: Yes (Hospitalization)
  Sender: FDA-Public Use
  Company Number: DAV-AE-MTX-12-30

PATIENT
  Age: 37 Year
  Sex: Female
  Weight: 52.7 kg

DRUGS (9)
  1. METHOTREXATE [Suspect]
     Indication: RHEUMATOID ARTHRITIS
     Dosage: UNK 2 TABLET (1 IN 1 WK), PER ORAL
     Route: 048
     Dates: start: 20110929, end: 20120207
  2. HUMIRA [Suspect]
     Indication: RHEUMATOID ARTHRITIS
     Dosage: UNK (40 MG, 1 IN 2 WK), SUBCUTANEOUS?
     Route: 058
     Dates: start: 20110929, end: 20120131
  3. INSULIN ASPART (INSULIN ASPART) [Concomitant]
  4. INSULIN GLARGINE (INSULIN GLARGINE) [Concomitant]
  5. FOLIC ACID (FOLIC ACID) [Concomitant]
  6. MACROGOL (MACROGOL) [Concomitant]
  7. FERROUS SULFATE (FERROUS SULFATE) [Concomitant]
  8. DICLOFENAC SODIUM (DICLOFENAC POTASSIUM) [Concomitant]
  9. ULTRACET (PARACETAMOL, TRAMADOL HYDROCHLORIDE) [Concomitant]

REACTIONS (1)
  - Anaemia [None]
